FAERS Safety Report 4662625-8 (Version None)
Quarter: 2005Q2

REPORT INFORMATION
  Report Type: 
  Country: None (occurrence: None)
  Receive Date: 20050512
  Receipt Date: 20050421
  Transmission Date: 20051028
  Serious: Yes (Other)
  Sender: FDA-Public Use
  Company Number: JP_050406411

PATIENT
  Age: 16 Year
  Sex: Male
  Weight: 100 kg

DRUGS (1)
  1. HUMULIN R [Suspect]
     Indication: DIABETIC KETOACIDOSIS
     Dosage: 55 U HOUR
     Dates: start: 20030823, end: 20030923

REACTIONS (7)
  - BLOOD CALCIUM DECREASED [None]
  - BRAIN OEDEMA [None]
  - PANCREATITIS [None]
  - PLATELET COUNT DECREASED [None]
  - PLEURAL EFFUSION [None]
  - PROTEIN TOTAL DECREASED [None]
  - PROTHROMBIN TIME PROLONGED [None]
